FAERS Safety Report 8558454 (Version 4)
Quarter: 2012Q4

REPORT INFORMATION
  Report Type: 
  Country: US (occurrence: US)
  Receive Date: 20120511
  Receipt Date: 20121212
  Transmission Date: 20130627
  Serious: Yes (Other)
  Sender: FDA-Public Use
  Company Number: US-PFIZER INC-2012112418

PATIENT
  Age: 39 Year
  Sex: Female
  Weight: 93.42 kg

DRUGS (43)
  1. PRISTIQ [Suspect]
     Indication: DEPRESSION
     Dosage: UNK, 1x/day
     Route: 048
     Dates: start: 200806, end: 200907
  2. PRISTIQ [Suspect]
     Dosage: UNK, 1x/day
     Route: 048
  3. PRISTIQ [Suspect]
     Dosage: UNK, 2x/day half tablet
     Route: 048
  4. PRISTIQ [Suspect]
     Dosage: 100 mg, 1x/day
     Route: 048
     Dates: start: 20100127, end: 2010
  5. PRISTIQ [Suspect]
     Dosage: 50 mg, 2x/day
     Route: 048
     Dates: start: 201012, end: 201101
  6. PRISTIQ [Suspect]
     Dosage: 50 mg, 3x for 2weeks and stop
     Route: 048
     Dates: start: 201103, end: 201104
  7. PROZAC [Suspect]
     Indication: ANXIETY
     Dosage: 60 mg, 1x/day
     Route: 048
  8. SYNTHROID [Concomitant]
     Dosage: 10 mg, UNK
  9. SYNTHROID [Concomitant]
     Dosage: UNK
  10. METFORMIN [Concomitant]
     Indication: POLYCYSTIC OVARIAN SYNDROME
     Dosage: 500 mg, 2x/day
  11. METFORMIN [Concomitant]
     Dosage: 1000 mg, 2x/day
  12. WELCHOL [Concomitant]
     Indication: CHOLESTEROL
     Dosage: UNK, 2x/day
  13. WELCHOL [Concomitant]
     Dosage: 625 mg, 2x/day
  14. WELCHOL [Concomitant]
     Dosage: 1875 mg, 2x/day
  15. DIAMOX [Concomitant]
     Dosage: 750 mg, 2x/day
  16. DIAMOX [Concomitant]
     Dosage: 250 mg, 2x/day
  17. BABY ASPIRIN [Concomitant]
     Indication: ROSACEA
     Dosage: UNK
  18. DEHYDROEPIANDROSTERONE [Concomitant]
     Dosage: UNK
  19. VITAMIN D3 [Concomitant]
     Dosage: UNK
  20. VITAMIN D3 [Concomitant]
     Dosage: 2000 IU, 1x/day
  21. MULTIVITAMINS [Concomitant]
     Dosage: UNK
  22. SINGULAIR [Concomitant]
     Dosage: 10 mg, UNK
  23. CYMBALTA [Concomitant]
     Dosage: 30 mg, 1x/day x 7 D- stop
  24. ESTER-C [Concomitant]
     Dosage: UNK
  25. FISH OIL [Concomitant]
     Dosage: UNK
  26. LEVOXYL [Concomitant]
     Dosage: 0.137 mg, UNK
  27. VITAMIN B6 [Concomitant]
     Dosage: UNK
  28. VITAMIN B12 [Concomitant]
     Dosage: UNK
  29. FESO4 [Concomitant]
     Dosage: UNK
  30. GLUCOPHAGE [Concomitant]
     Dosage: UNK
  31. MIRALAX [Concomitant]
     Dosage: UNK, 2x/day
  32. KLONOPIN [Concomitant]
     Dosage: 0.5 mg, 1/4 - 1/2 QD prn Rx x # 30 RF3
  33. TENUATE [Concomitant]
     Dosage: UNK
  34. AZITHROMYCIN [Concomitant]
     Dosage: 250 mg, 1 tablet
     Route: 048
  35. TRIAMCINOLONE ACETONIDE [Concomitant]
     Dosage: 0.5 %, 2x/day,1
  36. IBUPROFEN [Concomitant]
     Dosage: 800 mg, 3x/day, 1 tablet, Oral Tablet
     Route: 048
  37. PROMETHAZINE W/CODEINE [Concomitant]
     Dosage: 6.25-10 Mg/5 mL , 1 tsp, Every 4 to 6 hours
     Route: 048
  38. LEVAQUIN [Concomitant]
     Dosage: 500 mg, 1x/day, 1 tablet
     Route: 048
  39. ACETAMINOPHEN W/CODEINE [Concomitant]
     Dosage: 300-30 mg , 1 tablet, Every 6 hours
     Route: 048
  40. STOOL SOFTENER [Concomitant]
     Dosage: UNK
  41. VITAMIN B1 [Concomitant]
     Dosage: UNK, 1x/day
  42. SIBUTRAMINE [Concomitant]
     Indication: METABOLIC DISORDER
     Dosage: UNK
  43. ASPIRIN [Concomitant]
     Dosage: UNK

REACTIONS (24)
  - Nystagmus [Not Recovered/Not Resolved]
  - Eye movement disorder [Unknown]
  - Morbid thoughts [Unknown]
  - Withdrawal syndrome [Unknown]
  - Vision blurred [Unknown]
  - Gait disturbance [Unknown]
  - Limb discomfort [Unknown]
  - Feeling drunk [Unknown]
  - Dizziness [Unknown]
  - Nausea [Unknown]
  - Weight decreased [Unknown]
  - Appetite disorder [Unknown]
  - Blood cholesterol increased [Unknown]
  - Fatigue [Unknown]
  - Crying [Unknown]
  - Irritability [Unknown]
  - Anxiety [Not Recovered/Not Resolved]
  - Stress [Not Recovered/Not Resolved]
  - Insomnia [Unknown]
  - Hypersomnia [Unknown]
  - Malaise [Unknown]
  - Drug ineffective [Unknown]
  - Vomiting [Unknown]
  - Impaired driving ability [Unknown]
